FAERS Safety Report 9330651 (Version 2)
Quarter: 2013Q2

REPORT INFORMATION
  Report Type: Spontaneous
  Country: FR (occurrence: FR)
  Receive Date: 20130605
  Receipt Date: 20130607
  Transmission Date: 20140414
  Serious: Yes (Hospitalization, Other)
  Sender: FDA-Public Use
  Company Number: FR-AMGEN-FRASP2013039329

PATIENT
  Age: 86 Year
  Sex: Male
  Weight: 75 kg

DRUGS (5)
  1. ARANESP [Suspect]
     Indication: MYELODYSPLASTIC SYNDROME
     Dosage: 150 MUG, QWK
     Route: 058
     Dates: start: 20130327, end: 20130327
  2. PREDNISONE [Concomitant]
     Dosage: 7 MG, QD
  3. LEVOTHYROX [Concomitant]
     Dosage: 150 MUG, QD
  4. AMLOR [Concomitant]
     Dosage: 5 MG, QD
  5. DAFALGAN [Concomitant]
     Dosage: 3 G, AS NECESSARY

REACTIONS (3)
  - Rash maculo-papular [Recovering/Resolving]
  - Purpura [Recovering/Resolving]
  - Pruritus [Recovering/Resolving]
